FAERS Safety Report 19673651 (Version 2)
Quarter: 2022Q4

REPORT INFORMATION
  Report Type: Other
  Country: CA (occurrence: CA)
  Receive Date: 20210809
  Receipt Date: 20221201
  Transmission Date: 20230113
  Serious: Yes (Other)
  Sender: FDA-Public Use
  Company Number: CA-002147023-NVSC2020CA353620

PATIENT

DRUGS (1)
  1. LUCENTIS [Suspect]
     Active Substance: RANIBIZUMAB
     Indication: Retinal dystrophy
     Route: 065

REACTIONS (3)
  - Retinal dystrophy [Unknown]
  - Disease progression [Unknown]
  - Off label use [Unknown]
